FAERS Safety Report 25887048 (Version 2)
Quarter: 2025Q4

REPORT INFORMATION
  Report Type: Spontaneous
  Country: US (occurrence: US)
  Receive Date: 20251006
  Receipt Date: 20251022
  Transmission Date: 20260118
  Serious: No
  Sender: DR REDDYS
  Company Number: US-DRL-USA-USA/2025/08/012744

PATIENT
  Sex: Female

DRUGS (2)
  1. CLONIDINE [Suspect]
     Active Substance: CLONIDINE
     Indication: Hypertension
     Dosage: TRANSDERMAL SYSTEM USP  0.1MG/DAY- LACK?OF ADHERENCE
     Route: 062
  2. CLONIDINE [Suspect]
     Active Substance: CLONIDINE
     Dosage: TRANSDERMAL SYSTEM USP  0.1MG/DAY- LACK?OF ADHERENCE
     Route: 062

REACTIONS (2)
  - Incorrect dose administered [Unknown]
  - Product adhesion issue [Unknown]
